FAERS Safety Report 11038710 (Version 2)
Quarter: 2015Q2

REPORT INFORMATION
  Report Type: Spontaneous
  Country: US (occurrence: US)
  Receive Date: 20150416
  Receipt Date: 20150428
  Transmission Date: 20150821
  Serious: Yes (Death, Other)
  Sender: FDA-Public Use
  Company Number: US-MERCK-1504USA015440

PATIENT
  Sex: Female
  Weight: 84.81 kg

DRUGS (1)
  1. JANUVIA [Suspect]
     Active Substance: SITAGLIPTIN PHOSPHATE
     Indication: TYPE 2 DIABETES MELLITUS
     Dosage: 100 MG, QD
     Route: 048
     Dates: start: 20070613, end: 20111026

REACTIONS (11)
  - Pancreatic carcinoma [Fatal]
  - Atrial fibrillation [Unknown]
  - Cataract operation [Unknown]
  - Hiatus hernia [Unknown]
  - Splenic lesion [Unknown]
  - Intestinal obstruction [Unknown]
  - Hypertension [Unknown]
  - Dyspnoea [Unknown]
  - Intervertebral disc degeneration [Unknown]
  - Scoliosis [Unknown]
  - Radiotherapy [Unknown]

NARRATIVE: CASE EVENT DATE: 20110408
